FAERS Safety Report 17722691 (Version 3)
Quarter: 2020Q2

REPORT INFORMATION
  Report Type: Spontaneous
  Country: AT (occurrence: AT)
  Receive Date: 20200429
  Receipt Date: 20200612
  Transmission Date: 20200714
  Serious: Yes (Hospitalization, Other)
  Sender: FDA-Public Use
  Company Number: AT-HRARD-202000309

PATIENT
  Age: 6 Year
  Sex: Male
  Weight: 20.9 kg

DRUGS (8)
  1. LYSODREN [Suspect]
     Active Substance: MITOTANE
     Indication: ADRENOCORTICAL CARCINOMA
     Dosage: 3-0-3 TABLETS DAILY
     Dates: start: 20200226, end: 20200418
  2. LYSODREN [Suspect]
     Active Substance: MITOTANE
     Indication: ADRENOCORTICAL CARCINOMA
     Dates: start: 20200421
  3. HUMATIN PULVIS [Concomitant]
     Indication: INFECTION PROPHYLAXIS
     Dosage: 1.5 ML TID
     Dates: start: 20191001
  4. LYSODREN [Suspect]
     Active Substance: MITOTANE
     Indication: ADRENOCORTICAL CARCINOMA
     Dosage: DOSES SLOWLY INCREASED
     Dates: start: 20191002, end: 20200225
  5. HYDROCORTONE [Concomitant]
     Active Substance: HYDROCORTISONE
     Indication: SUPPLEMENTATION THERAPY
     Dosage: INCREASED TO A STRESS DOSE DURING HOSPITALIZATION BETWEEN 19 AND 25 APR 2020
     Route: 042
     Dates: start: 20200419
  6. HYDROCORTONE [Concomitant]
     Active Substance: HYDROCORTISONE
     Indication: SUPPLEMENTATION THERAPY
     Dosage: 10 MG-10 MG-0
     Dates: start: 20191031
  7. AMPHOMORONAL SUSPENSION [Concomitant]
     Indication: INFECTION PROPHYLAXIS
     Dosage: 0.5 ML TID
     Dates: start: 20191001
  8. EUSAPRIM SUSPENSION [Concomitant]
     Indication: INFECTION PROPHYLAXIS
     Dosage: 7 ML BID, MONDAY TO WEDNESDAY DURING THE WEEK
     Dates: start: 20191001

REACTIONS (6)
  - Adrenal insufficiency [Recovered/Resolved]
  - Ascites [Recovered/Resolved]
  - Hypothyroidism [Unknown]
  - Pleural effusion [Recovered/Resolved]
  - Off label use [Unknown]
  - Electrocardiogram QT prolonged [Recovered/Resolved]

NARRATIVE: CASE EVENT DATE: 20191002
